FAERS Safety Report 14683343 (Version 1)
Quarter: 2018Q1

REPORT INFORMATION
  Report Type: Spontaneous
  Country: US (occurrence: US)
  Receive Date: 20180327
  Receipt Date: 20180327
  Transmission Date: 20180509
  Serious: No
  Sender: FDA-Public Use
  Company Number: US-PFIZER INC-2018122036

PATIENT
  Age: 66 Year
  Sex: Female
  Weight: 64 kg

DRUGS (1)
  1. IBRANCE [Suspect]
     Active Substance: PALBOCICLIB
     Indication: BREAST CANCER METASTATIC
     Dosage: 20 MG, CYCLIC (ONE CAPSULE BY MOUTH DAILY FOR 21 DAYS AND THEN OFF FOR 7 DAYS)
     Dates: start: 20180306

REACTIONS (3)
  - Oral herpes [Not Recovered/Not Resolved]
  - Mouth ulceration [Recovering/Resolving]
  - Stomatitis [Unknown]

NARRATIVE: CASE EVENT DATE: 201803
